FAERS Safety Report 9714245 (Version 2)
Quarter: 2013Q4

REPORT INFORMATION
  Report Type: Spontaneous
  Country: US (occurrence: US)
  Receive Date: 20131126
  Receipt Date: 20131126
  Transmission Date: 20140711
  Serious: No
  Sender: FDA-Public Use
  Company Number: US-GILEAD-2008-0018795

PATIENT
  Age: 73 Year
  Sex: Female

DRUGS (3)
  1. LETAIRIS [Suspect]
     Indication: PULMONARY ARTERIAL HYPERTENSION
     Route: 048
     Dates: start: 20071219
  2. FUROSEMIDE [Concomitant]
  3. KLOR-CON [Concomitant]
     Indication: MINERAL SUPPLEMENTATION

REACTIONS (1)
  - Blood potassium decreased [None]
